FAERS Safety Report 8391286-X (Version None)
Quarter: 2012Q2

REPORT INFORMATION
  Report Type: 
  Country: None (occurrence: None)
  Receive Date: 20120529
  Receipt Date: 20120518
  Transmission Date: 20120825
  Serious: Yes (Hospitalization, Other)
  Sender: FDA-Public Use
  Company Number: US-JNJFOC-20110903330

PATIENT
  Sex: Female

DRUGS (4)
  1. DEPO-MEDROL [Suspect]
     Indication: ACUTE SINUSITIS
     Route: 030
  2. LEVAQUIN [Suspect]
     Indication: BRONCHITIS
     Route: 048
     Dates: start: 20090901
  3. LEVAQUIN [Suspect]
     Indication: ACUTE SINUSITIS
     Route: 048
     Dates: start: 20090901
  4. DEPO-MEDROL [Suspect]
     Indication: BRONCHITIS
     Route: 030

REACTIONS (2)
  - TENDON RUPTURE [None]
  - TENOSYNOVITIS [None]
